FAERS Safety Report 12210037 (Version 1)
Quarter: 2016Q1

REPORT INFORMATION
  Report Type: Spontaneous
  Country: FR (occurrence: FR)
  Receive Date: 20160325
  Receipt Date: 20160325
  Transmission Date: 20160526
  Serious: Yes (Other)
  Sender: FDA-Public Use
  Company Number: FR-009507513-1603FRA010112

PATIENT
  Sex: Male

DRUGS (1)
  1. GRAZAX [Suspect]
     Active Substance: PHLEUM PRATENSE POLLEN
     Dosage: UNK
     Route: 065
     Dates: start: 201601, end: 20160316

REACTIONS (2)
  - Mouth swelling [Unknown]
  - Keratitis [Unknown]

NARRATIVE: CASE EVENT DATE: 2016
